FAERS Safety Report 8847466 (Version 4)
Quarter: 2015Q1

REPORT INFORMATION
  Report Type: Spontaneous
  Country: US (occurrence: US)
  Receive Date: 20121018
  Receipt Date: 20150206
  Transmission Date: 20150721
  Serious: Yes (Disabling)
  Sender: FDA-Public Use
  Company Number: US-MERCK-1210USA006858

PATIENT
  Sex: Male
  Weight: 85.71 kg

DRUGS (2)
  1. PROPECIA [Suspect]
     Active Substance: FINASTERIDE
     Indication: ANDROGENETIC ALOPECIA
     Dosage: 1 MG, DAILY
     Route: 048
     Dates: start: 2002, end: 200406
  2. PROSCAR [Suspect]
     Active Substance: FINASTERIDE
     Indication: ANDROGENETIC ALOPECIA
     Dosage: UNK
     Route: 048
     Dates: start: 2001

REACTIONS (26)
  - Asthenia [Unknown]
  - Acarodermatitis [Unknown]
  - Tonsillectomy [Unknown]
  - Loss of libido [Recovered/Resolved]
  - Blood testosterone decreased [Unknown]
  - Large intestinal polypectomy [Unknown]
  - Cognitive disorder [Not Recovered/Not Resolved]
  - Anxiety [Not Recovered/Not Resolved]
  - Erectile dysfunction [Not Recovered/Not Resolved]
  - Depression [Not Recovered/Not Resolved]
  - Vasectomy [Unknown]
  - Vitamin D deficiency [Unknown]
  - Haemorrhoids [Unknown]
  - Weight increased [Unknown]
  - Primary hypogonadism [Unknown]
  - Drug ineffective [Unknown]
  - Asthma [Unknown]
  - Colitis ulcerative [Recovered/Resolved]
  - Drug administration error [Unknown]
  - Sexual dysfunction [Not Recovered/Not Resolved]
  - Varicella [Unknown]
  - Bronchitis [Unknown]
  - Weight increased [Unknown]
  - Weight decreased [Unknown]
  - Ejaculation disorder [Not Recovered/Not Resolved]
  - Weight decreased [Unknown]

NARRATIVE: CASE EVENT DATE: 2001
